FAERS Safety Report 19967663 (Version 1)
Quarter: 2021Q4

REPORT INFORMATION
  Report Type: Spontaneous
  Country: US (occurrence: US)
  Receive Date: 20211018
  Receipt Date: 20211018
  Transmission Date: 20220303
  Serious: No
  Sender: FDA-Public Use
  Company Number: None

PATIENT
  Age: 62 Year
  Sex: Female

DRUGS (1)
  1. PRALUENT [Suspect]
     Active Substance: ALIROCUMAB
     Dosage: ?          OTHER FREQUENCY:EVERY 2 WEEKS;OTHER ROUTE:INJECTION
     Dates: start: 20210904

REACTIONS (12)
  - Feeling hot [None]
  - Chills [None]
  - Hyperhidrosis [None]
  - Fatigue [None]
  - Fatigue [None]
  - Blood pressure increased [None]
  - Body temperature increased [None]
  - Arthralgia [None]
  - Burning sensation [None]
  - Cough [None]
  - Diarrhoea [None]
  - Decreased appetite [None]

NARRATIVE: CASE EVENT DATE: 20210904
